FAERS Safety Report 18685957 (Version 1)
Quarter: 2020Q4

REPORT INFORMATION
  Report Type: Spontaneous
  Country: US (occurrence: US)
  Receive Date: 20201231
  Receipt Date: 20201231
  Transmission Date: 20210114
  Serious: No
  Sender: FDA-Public Use
  Company Number: US-HORIZON-2020HZN02836

PATIENT
  Age: 43 Year
  Sex: Female
  Weight: 178.99 kg

DRUGS (25)
  1. MEGESTROL ACETATE. [Concomitant]
     Active Substance: MEGESTROL ACETATE
  2. LORATADINE. [Concomitant]
     Active Substance: LORATADINE
  3. METFORMIN ER [Concomitant]
     Active Substance: METFORMIN HYDROCHLORIDE
  4. STERILE WATER FOR INJECTION [Concomitant]
     Active Substance: WATER
  5. LISINOPRIL. [Concomitant]
     Active Substance: LISINOPRIL
  6. ZOFRAN [Concomitant]
     Active Substance: ONDANSETRON HYDROCHLORIDE
  7. MEDROXYPROGESTERONE ACETATE. [Concomitant]
     Active Substance: MEDROXYPROGESTERONE ACETATE
  8. SODIUM CHLORIDE. [Concomitant]
     Active Substance: SODIUM CHLORIDE
  9. LOSARTAN POTASSIUM. [Concomitant]
     Active Substance: LOSARTAN POTASSIUM
  10. CALCIUM CARBONATE. [Concomitant]
     Active Substance: CALCIUM CARBONATE
     Dosage: 500/1250
  11. VICTOZA [Concomitant]
     Active Substance: LIRAGLUTIDE
     Dosage: 2-PAK 0.6MG/0.1 PEN
  12. BACLOFEN. [Concomitant]
     Active Substance: BACLOFEN
  13. MELOXICAM. [Concomitant]
     Active Substance: MELOXICAM
  14. HYDROCHLOROTHIAZIDE. [Concomitant]
     Active Substance: HYDROCHLOROTHIAZIDE
  15. TUMS [Concomitant]
     Active Substance: CALCIUM CARBONATE
     Dosage: 200/500 MG
  16. NORMAL SALINE [Concomitant]
     Active Substance: SODIUM CHLORIDE
  17. CLOBETASOL EMOLLIENT [Concomitant]
  18. MAGNESIUM OXIDE. [Concomitant]
     Active Substance: MAGNESIUM OXIDE
  19. VENLAFAXINE HCL [Concomitant]
     Active Substance: VENLAFAXINE HYDROCHLORIDE
  20. TEPEZZA [Suspect]
     Active Substance: TEPROTUMUMAB-TRBW
     Indication: PRODUCT USED FOR UNKNOWN INDICATION
     Dates: start: 20200807
  21. AMITRIPTYLINE HCL [Concomitant]
     Active Substance: AMITRIPTYLINE
  22. GABAPENTIN. [Concomitant]
     Active Substance: GABAPENTIN
  23. LEVOTHYROXINE SODIUM. [Concomitant]
     Active Substance: LEVOTHYROXINE SODIUM
  24. ALBUTEROL SULFATE HFA [Concomitant]
     Active Substance: ALBUTEROL SULFATE
  25. MECLIZINE HCL [Concomitant]
     Active Substance: MECLIZINE HYDROCHLORIDE

REACTIONS (3)
  - Hypertension [Unknown]
  - Dizziness [Unknown]
  - Blood glucose increased [Unknown]
